FAERS Safety Report 5318716-1 (Version None)
Quarter: 2007Q2

REPORT INFORMATION
  Report Type: 
  Country: None (occurrence: None)
  Receive Date: 20070508
  Receipt Date: 20070427
  Transmission Date: 20071010
  Serious: Yes (Other)
  Sender: FDA-Public Use
  Company Number: ES-JNJFOC-20070404993

PATIENT
  Sex: Male

DRUGS (1)
  1. REMICADE [Suspect]
     Indication: WEGENER'S GRANULOMATOSIS
     Route: 042

REACTIONS (4)
  - AGEUSIA [None]
  - ANOSMIA [None]
  - NERVOUS SYSTEM DISORDER [None]
  - VISUAL EVOKED POTENTIALS ABNORMAL [None]
